FAERS Safety Report 6142233-2 (Version None)
Quarter: 2009Q2

REPORT INFORMATION
  Report Type: 
  Country: None (occurrence: None)
  Receive Date: 20090401
  Receipt Date: 20090401
  Transmission Date: 20091009
  Serious: Yes (Hospitalization)
  Sender: FDA-Public Use
  Company Number: None

PATIENT
  Age: 71 Year
  Sex: Female

DRUGS (4)
  1. GABAPENTIN [Suspect]
  2. EFFEXOR [Suspect]
  3. VICODIN [Suspect]
  4. LORAZEPAM [Suspect]

REACTIONS (4)
  - FLUID OVERLOAD [None]
  - HAEMODIALYSIS [None]
  - HYPOGLYCAEMIA [None]
  - MENTAL STATUS CHANGES [None]
